FAERS Safety Report 10039840 (Version 2)
Quarter: 2014Q2

REPORT INFORMATION
  Report Type: Spontaneous
  Country: US (occurrence: US)
  Receive Date: 20140326
  Receipt Date: 20140418
  Transmission Date: 20141212
  Serious: Yes (Other)
  Sender: FDA-Public Use
  Company Number: US-JNJFOC-20140311286

PATIENT
  Sex: Male
  Weight: 62.14 kg

DRUGS (9)
  1. INVOKANA [Suspect]
     Indication: DIABETES MELLITUS
     Route: 048
     Dates: start: 20140313
  2. DIGOXIN [Concomitant]
     Indication: CARDIAC FAILURE CONGESTIVE
     Route: 048
     Dates: start: 2004
  3. VASOTEC [Concomitant]
     Indication: CARDIAC FAILURE CONGESTIVE
     Route: 048
     Dates: start: 2004
  4. LIPITOR [Concomitant]
     Indication: BLOOD CHOLESTEROL INCREASED
     Route: 048
     Dates: start: 2004
  5. JANUMET [Concomitant]
     Indication: DIABETES MELLITUS
     Route: 048
     Dates: start: 2004
  6. LASIX [Concomitant]
     Indication: CARDIAC FAILURE CONGESTIVE
     Route: 048
     Dates: start: 2004
  7. TOPROL XL [Concomitant]
     Indication: CARDIAC FAILURE CONGESTIVE
     Route: 048
     Dates: start: 2004
  8. PRILOSEC [Concomitant]
     Indication: DYSPEPSIA
     Route: 048
     Dates: start: 2004
  9. PRADAXA [Concomitant]
     Indication: ANTICOAGULANT THERAPY
     Route: 048
     Dates: start: 2004

REACTIONS (3)
  - Abnormal loss of weight [Recovering/Resolving]
  - Pollakiuria [Not Recovered/Not Resolved]
  - Thirst [Not Recovered/Not Resolved]
